FAERS Safety Report 7051115-3 (Version None)
Quarter: 2010Q4

REPORT INFORMATION
  Report Type: 
  Country: None (occurrence: None)
  Receive Date: 20101019
  Receipt Date: 20101005
  Transmission Date: 20110411
  Serious: Yes (Death, Other)
  Sender: FDA-Public Use
  Company Number: NL-RANBAXY-2009RR-28278

PATIENT
  Age: 67 Year
  Sex: Female

DRUGS (7)
  1. ITRACONAZOLE [Suspect]
     Indication: ONYCHOMYCOSIS
     Dosage: 200 MG, BID
  2. ITRACONAZOLE [Suspect]
     Dosage: 200 MG, QD
  3. CIPROFIBRATE [Suspect]
     Indication: HYPERLIPIDAEMIA
     Dosage: 100 MG, QD
  4. SIMVASTATIN [Suspect]
  5. CAPTOPRIL [Concomitant]
  6. CHLORTHALIDONE [Concomitant]
  7. BECLOMETHASONE DIPROPIONATE [Concomitant]
     Route: 055

REACTIONS (2)
  - DRUG INTERACTION [None]
  - PANCREATITIS ACUTE [None]
